FAERS Safety Report 5475119-7 (Version None)
Quarter: 2007Q4

REPORT INFORMATION
  Report Type: 
  Country: None (occurrence: None)
  Receive Date: 20071002
  Receipt Date: 20070911
  Transmission Date: 20080405
  Serious: Yes (Death)
  Sender: FDA-Public Use
  Company Number: JP-BOEHRINGER INGELHEIM PHARMACEUTICALS, INC.-2007-BP-21951NB

PATIENT
  Sex: Male
  Weight: 48.8 kg

DRUGS (6)
  1. SPIRIVA [Suspect]
     Indication: EMPHYSEMA
     Route: 055
     Dates: start: 20061026, end: 20070123
  2. SAIREI-TO [Concomitant]
     Indication: OEDEMA
     Route: 048
     Dates: start: 20061018, end: 20070117
  3. RABEPRAZOLE SODIUM [Concomitant]
     Indication: REFLUX OESOPHAGITIS
     Route: 048
     Dates: start: 20061018, end: 20070117
  4. MUCOSOLVAN [Concomitant]
     Indication: BRONCHITIS
     Route: 048
     Dates: start: 20061018, end: 20070117
  5. UNIPHYL [Concomitant]
     Indication: BRONCHITIS
     Route: 048
     Dates: start: 20061018, end: 20070117
  6. DASEN [Concomitant]
     Indication: BRONCHITIS
     Route: 048
     Dates: start: 20061018, end: 20070117

REACTIONS (1)
  - DEATH [None]
